FAERS Safety Report 10759837 (Version 1)
Quarter: 2015Q1

REPORT INFORMATION
  Report Type: Other
  Country: DE (occurrence: DE)
  Receive Date: 20150203
  Receipt Date: 20150203
  Transmission Date: 20150721
  Serious: Yes (Other)
  Sender: FDA-Public Use
  Company Number: DE-MYLANLABS-2015M1001946

PATIENT

DRUGS (2)
  1. TRIMIPRAMIN [Concomitant]
     Indication: SLEEP DISORDER
     Dosage: 50 MG, UNK
  2. VENLAFAXIN [Suspect]
     Active Substance: VENLAFAXINE HYDROCHLORIDE
     Indication: DEPRESSION
     Dosage: 225 MG, UNK
     Dates: start: 20141204

REACTIONS (2)
  - Restless legs syndrome [Recovered/Resolved]
  - Tongue disorder [Recovered/Resolved]

NARRATIVE: CASE EVENT DATE: 20141204
